FAERS Safety Report 5513833-5 (Version None)
Quarter: 2007Q4

REPORT INFORMATION
  Report Type: 
  Country: None (occurrence: None)
  Receive Date: 20071105
  Receipt Date: 20071022
  Transmission Date: 20080405
  Serious: No
  Sender: FDA-Public Use
  Company Number: SPV1-2007-04658

PATIENT
  Age: 64 Year
  Sex: Female
  Weight: 72.6 kg

DRUGS (14)
  1. FOSRENOL [Suspect]
     Indication: DIALYSIS
     Dosage: 1500 MG, 1X/DAYL:QD, ORAL ; ORAL
     Route: 048
     Dates: end: 20071001
  2. FOSRENOL [Suspect]
     Indication: DIALYSIS
     Dosage: 1500 MG, 1X/DAYL:QD, ORAL ; ORAL
     Route: 048
     Dates: start: 20071001
  3. NEXIUM [Suspect]
     Indication: COUGH
     Dosage: 80 MG, 1X/DAY:QD, ORAL
     Route: 048
     Dates: end: 20071021
  4. NEXIUM [Suspect]
     Indication: GASTROOESOPHAGEAL REFLUX DISEASE
     Dosage: 80 MG, 1X/DAY:QD, ORAL
     Route: 048
     Dates: end: 20071021
  5. COZAAR [Concomitant]
  6. CLONIDINE [Concomitant]
  7. LOPRESSOR [Concomitant]
  8. NORVASC [Concomitant]
  9. ZOCOR [Concomitant]
  10. TRICOR                         /00090101/ (ADENOSINE) [Concomitant]
  11. SYNTHROID [Concomitant]
  12. LANTUS [Concomitant]
  13. HUMALOG                    /00030501/ (INSULIN) [Concomitant]
  14. RESTORIL                 /00054301/ (CHLORMEZANONE) [Concomitant]

REACTIONS (1)
  - ABDOMINAL DISTENSION [None]
